FAERS Safety Report 15590272 (Version 2)
Quarter: 2019Q2

REPORT INFORMATION
  Report Type: Spontaneous
  Country: US (occurrence: US)
  Receive Date: 20181106
  Receipt Date: 20190425
  Transmission Date: 20190711
  Serious: No
  Sender: FDA-Public Use
  Company Number: US-PFIZER INC-2018431396

PATIENT
  Age: 54 Year
  Sex: Female

DRUGS (2)
  1. DEXAMETHASONE INTENSOL [Suspect]
     Active Substance: DEXAMETHASONE
     Dosage: UNK
  2. AZITHROMYCIN ANHYDROUS. [Suspect]
     Active Substance: AZITHROMYCIN ANHYDROUS
     Dosage: 600 MG, UNK

REACTIONS (1)
  - Drug hypersensitivity [Unknown]
